FAERS Safety Report 10515594 (Version 1)
Quarter: 2014Q4

REPORT INFORMATION
  Report Type: Spontaneous
  Country: IN (occurrence: None)
  Receive Date: 20141009
  Receipt Date: 20141009
  Transmission Date: 20150528
  Serious: Yes (Other)
  Sender: FDA-Public Use
  Company Number: UCM201409-000168

PATIENT
  Age: 42 Year
  Sex: Male

DRUGS (3)
  1. PROXYVON [Suspect]
     Active Substance: ACETAMINOPHEN\PROPOXYPHENE
  2. CLONAZEPAM (CLONAZEPAM) (CLONAZEPAM) [Suspect]
     Active Substance: CLONAZEPAM
     Indication: DRUG DEPENDENCE
  3. CLONIDINE HCL [Suspect]
     Active Substance: CLONIDINE HYDROCHLORIDE
     Indication: DRUG DEPENDENCE

REACTIONS (5)
  - Withdrawal syndrome [None]
  - Drug dependence [None]
  - Drug abuse [None]
  - Off label use [None]
  - Withdrawal hypertension [None]
